FAERS Safety Report 4943573-2 (Version None)
Quarter: 2006Q1

REPORT INFORMATION
  Report Type: 
  Country: None (occurrence: None)
  Receive Date: 20060310
  Receipt Date: 20060224
  Transmission Date: 20060701
  Serious: Yes (Life-Threatening, Hospitalization)
  Sender: FDA-Public Use
  Company Number: B0410424A

PATIENT
  Age: 40 Year
  Sex: Female
  Weight: 149.6 kg

DRUGS (2)
  1. LAMICTAL [Suspect]
     Indication: BIPOLAR DISORDER
     Dosage: 50 MG/ TWICE PER DAY/ORAL
     Route: 048
     Dates: start: 20060125, end: 20060208
  2. PAROXETINE HYDROCHLORIDE [Concomitant]

REACTIONS (10)
  - BLINDNESS [None]
  - CONJUNCTIVITIS [None]
  - DRUG HYPERSENSITIVITY [None]
  - HEADACHE [None]
  - INFECTION [None]
  - LYMPHADENOPATHY [None]
  - PHARYNGITIS [None]
  - PYREXIA [None]
  - TOXIC EPIDERMAL NECROLYSIS [None]
  - VARICELLA [None]
